FAERS Safety Report 7597623-8 (Version None)
Quarter: 2011Q3

REPORT INFORMATION
  Report Type: 
  Country: None (occurrence: None)
  Receive Date: 20110708
  Receipt Date: 20110630
  Transmission Date: 20111222
  Serious: Yes (Other)
  Sender: FDA-Public Use
  Company Number: CA-ROCHE-787307

PATIENT
  Sex: Female

DRUGS (7)
  1. SYNTHROID [Concomitant]
  2. BEVACIZUMAB [Suspect]
     Indication: GLIOBLASTOMA
     Route: 042
     Dates: start: 20110401, end: 20110630
  3. PROCHLORPERAZINE [Concomitant]
  4. DESOGESTREL AND ETHINYL ESTRADIOL [Concomitant]
     Dosage: REPORTED AS MARVELLON
  5. HYDROMORPHONE HCL [Concomitant]
  6. DILANTIN [Concomitant]
  7. TEMOZOLOMIDE [Concomitant]

REACTIONS (1)
  - DISEASE PROGRESSION [None]
